FAERS Safety Report 12631662 (Version 2)
Quarter: 2016Q3

REPORT INFORMATION
  Report Type: Spontaneous
  Country: US (occurrence: US)
  Receive Date: 20160808
  Receipt Date: 20160808
  Transmission Date: 20161109
  Serious: No
  Sender: FDA-Public Use
  Company Number: US-BEH-2015055240

PATIENT
  Age: 66 Year
  Sex: Female
  Weight: 52 kg

DRUGS (21)
  1. RECLAST [Concomitant]
     Active Substance: ZOLEDRONIC ACID
  2. CALCIUM [Concomitant]
     Active Substance: CALCIUM
  3. VITAMIN D [Concomitant]
     Active Substance: CHOLECALCIFEROL
  4. ADVAIR HFA [Concomitant]
     Active Substance: FLUTICASONE PROPIONATE\SALMETEROL XINAFOATE
  5. ACETAMINOPHEN. [Concomitant]
     Active Substance: ACETAMINOPHEN
  6. LMX [Concomitant]
     Active Substance: LIDOCAINE
  7. ZADITOR [Concomitant]
     Active Substance: KETOTIFEN FUMARATE
  8. TYLENOL CODEINE #3 [Concomitant]
  9. DIPHENHYDRAMINE. [Concomitant]
     Active Substance: DIPHENHYDRAMINE
  10. EPIPEN [Concomitant]
     Active Substance: EPINEPHRINE
  11. FLONASE [Concomitant]
     Active Substance: FLUTICASONE PROPIONATE
  12. HIZENTRA [Suspect]
     Active Substance: HUMAN IMMUNOGLOBULIN G
     Indication: IMMUNODEFICIENCY COMMON VARIABLE
     Route: 058
     Dates: start: 20150305, end: 20151020
  13. SINGULAIR [Concomitant]
     Active Substance: MONTELUKAST SODIUM
  14. IRON PLUS C [Concomitant]
  15. LIDODERM [Concomitant]
     Active Substance: LIDOCAINE
  16. CYMBALTA [Concomitant]
     Active Substance: DULOXETINE HYDROCHLORIDE
  17. SYNTHROID [Concomitant]
     Active Substance: LEVOTHYROXINE SODIUM
  18. FLOVENT HFA [Concomitant]
     Active Substance: FLUTICASONE PROPIONATE
  19. CLONAZEPAM. [Concomitant]
     Active Substance: CLONAZEPAM
  20. VERAPAMIL [Concomitant]
     Active Substance: VERAPAMIL HYDROCHLORIDE
  21. SKELAXIN [Concomitant]
     Active Substance: METAXALONE

REACTIONS (1)
  - Administration site extravasation [Recovered/Resolved]

NARRATIVE: CASE EVENT DATE: 20151020
